FAERS Safety Report 19074259 (Version 1)
Quarter: 2021Q1

REPORT INFORMATION
  Report Type: Spontaneous
  Country: FR (occurrence: FR)
  Receive Date: 20210330
  Receipt Date: 20210330
  Transmission Date: 20210420
  Serious: Yes (Life-Threatening, Hospitalization)
  Sender: FDA-Public Use
  Company Number: FR-PFIZER INC-2021333870

PATIENT
  Age: 73 Year
  Sex: Female

DRUGS (2)
  1. ZIRABEV [Suspect]
     Active Substance: BEVACIZUMAB-BVZR
     Indication: HEREDITARY HAEMORRHAGIC TELANGIECTASIA
     Dosage: 1 DF, MONTHLY
     Route: 041
     Dates: start: 20210111, end: 20210309
  2. VENOFER [Suspect]
     Active Substance: IRON SUCROSE
     Indication: APLASTIC ANAEMIA
     Dosage: 1 DF, MONTHLY
     Route: 041
     Dates: start: 201912, end: 20210309

REACTIONS (4)
  - Off label use [Unknown]
  - Abdominal pain [Recovered/Resolved]
  - Infusion related reaction [Recovered/Resolved]
  - Hypotension [Recovered/Resolved]

NARRATIVE: CASE EVENT DATE: 20210111
